FAERS Safety Report 4616840-X (Version None)
Quarter: 2005Q2

REPORT INFORMATION
  Report Type: 
  Country: None (occurrence: None)
  Receive Date: 20050311
  Receipt Date: 20041112
  Transmission Date: 20051028
  Serious: No
  Sender: FDA-Public Use
  Company Number: 2004-BP-09843BP

PATIENT
  Age: 77 Year
  Sex: Female

DRUGS (14)
  1. SPIRIVA [Suspect]
     Indication: CHRONIC OBSTRUCTIVE PULMONARY DISEASE
     Dosage: 18 MCG (18 MCG), IH
     Route: 055
     Dates: start: 20040925, end: 20041006
  2. FLOVENT [Concomitant]
  3. SINGULAIR (MONTELUKAST) [Concomitant]
  4. ZYRTEC [Concomitant]
  5. PROTONIX [Concomitant]
  6. PAMINE (HYOSCINE METHOBROMIDE) [Concomitant]
  7. BENICAR [Concomitant]
  8. CARDIZEM [Concomitant]
  9. PREMPRO 14/14 [Concomitant]
  10. CELEBREX [Concomitant]
  11. ATROVENT [Concomitant]
  12. MIACALCIN [Concomitant]
  13. CALTRATE (CALCIUM CARBONATE) [Concomitant]
  14. TYLENOL [Concomitant]

REACTIONS (3)
  - DRY MOUTH [None]
  - THROAT IRRITATION [None]
  - VISION BLURRED [None]
